FAERS Safety Report 5148284-9 (Version None)
Quarter: 2006Q4

REPORT INFORMATION
  Report Type: 
  Country: None (occurrence: None)
  Receive Date: 20061106
  Receipt Date: 20061019
  Transmission Date: 20070319
  Serious: Yes (Other)
  Sender: FDA-Public Use
  Company Number: 231440

PATIENT
  Age: 44 Year
  Sex: Male

DRUGS (1)
  1. RAPTIVA [Suspect]
     Indication: PSORIASIS
     Dosage: 0.114 NFM 1/WEEK, SUBCUTANEOUS
     Route: 058
     Dates: start: 20050114, end: 20051209

REACTIONS (6)
  - HEADACHE [None]
  - HERPES ZOSTER [None]
  - HYPERAESTHESIA [None]
  - MUSCULOSKELETAL STIFFNESS [None]
  - PURPURA [None]
  - RASH [None]
